FAERS Safety Report 14781221 (Version 1)
Quarter: 2018Q2

REPORT INFORMATION
  Report Type: Not Available
  Country: US (occurrence: US)
  Receive Date: 20180419
  Receipt Date: 20180419
  Transmission Date: 20180711
  Serious: No
  Sender: FDA-Public Use
  Company Number: US-NEUROCRINE BIOSCIENCES INC.-2018NBI01145

PATIENT
  Sex: Female

DRUGS (1)
  1. INGREZZA [Suspect]
     Active Substance: VALBENAZINE
     Indication: PRODUCT USED FOR UNKNOWN INDICATION
     Route: 048
     Dates: start: 20180127, end: 2018

REACTIONS (4)
  - Muscle twitching [Unknown]
  - Drug ineffective [None]
  - Restlessness [Unknown]
  - Palpitations [Unknown]

NARRATIVE: CASE EVENT DATE: 2018
